FAERS Safety Report 9286080 (Version 1)
Quarter: 2013Q2

REPORT INFORMATION
  Report Type: Spontaneous
  Country: US (occurrence: None)
  Receive Date: 20130507
  Receipt Date: 20130507
  Transmission Date: 20140414
  Serious: Yes (Other)
  Sender: FDA-Public Use
  Company Number: AUR-APL-2013-03661

PATIENT
  Age: 76 Year
  Sex: Female
  Weight: 54.42 kg

DRUGS (5)
  1. GABAPENTIN (GABAPENTIN) [Suspect]
     Indication: PAIN IN EXTREMITY
     Dosage: 1X/ DAY ( 1 OR 2 CAPSULES), ORAL
     Route: 048
     Dates: start: 201304
  2. OMEPRAZOLE [Suspect]
     Indication: PRODUCT USED FOR UNKNOWN INDICATION
     Dates: start: 2012
  3. OXYBUTYNIN [Suspect]
     Indication: HYPERTONIC BLADDER
     Dosage: UNK, SINGLE, UNKNOWN
     Dates: start: 201304
  4. ATIVAN (LORAZEPAM] [Concomitant]
  5. PRAVASTATIN (PRAVASTATIN) [Concomitant]

REACTIONS (7)
  - Hypertonic bladder [None]
  - Gastrooesophageal reflux disease [None]
  - Dizziness [None]
  - Drug ineffective [None]
  - Insomnia [None]
  - Restless legs syndrome [None]
  - Nausea [None]
